FAERS Safety Report 7701369-2 (Version None)
Quarter: 2011Q3

REPORT INFORMATION
  Report Type: 
  Country: None (occurrence: None)
  Receive Date: 20110822
  Receipt Date: 20110818
  Transmission Date: 20111222
  Serious: Yes (Other)
  Sender: FDA-Public Use
  Company Number: IE-BAYER-2011-040477

PATIENT
  Age: 56 Year
  Sex: Female

DRUGS (8)
  1. KAY CIEL DURA-TABS [Concomitant]
  2. SORAFENIB (RAF KINASE INHIBITOR) [Suspect]
     Indication: HEPATIC NEOPLASM MALIGNANT
     Dosage: 400 MG, BID
     Route: 048
     Dates: start: 20100803
  3. METRONIDAZOLE [Concomitant]
  4. CEFUROXIME [Concomitant]
  5. GALFER [Concomitant]
  6. CALCICHEW-D3 FORTE [Concomitant]
  7. RISEDRONATE SODIUM [Concomitant]
  8. SANDO K [Concomitant]
     Dosage: UNK UNK, BID
     Route: 048

REACTIONS (3)
  - BLOOD POTASSIUM DECREASED [None]
  - ANKLE FRACTURE [None]
  - MALAISE [None]
